FAERS Safety Report 8484576-3 (Version None)
Quarter: 2012Q3

REPORT INFORMATION
  Report Type: 
  Country: None (occurrence: None)
  Receive Date: 20120703
  Receipt Date: 20120316
  Transmission Date: 20120928
  Serious: No
  Sender: FDA-Public Use
  Company Number: US-TEVA-328598USA

PATIENT
  Sex: Female
  Weight: 81.72 kg

DRUGS (10)
  1. CYMBALTA [Concomitant]
     Indication: FIBROMYALGIA
     Dosage: 120 MILLIGRAM;
     Route: 048
  2. VITAMIN D [Concomitant]
     Indication: VITAMIN SUPPLEMENTATION
     Dosage: 2000 IU (INTERNATIONAL UNIT);
     Route: 048
  3. VICODIN [Concomitant]
     Indication: PAIN
     Route: 048
  4. FUROSEMIDE [Concomitant]
     Indication: FLUID RETENTION
     Dosage: 40 MILLIGRAM;
     Route: 048
  5. MORPHINE [Concomitant]
     Indication: PAIN
     Dosage: 15 MILLIGRAM;
     Route: 048
     Dates: start: 20120201
  6. VALTREX [Concomitant]
     Indication: PROPHYLAXIS
     Dosage: 500 MILLIGRAM;
     Route: 048
  7. NUVIGIL [Suspect]
     Indication: CIRCADIAN RHYTHM SLEEP DISORDER
     Dosage: 250 MILLIGRAM;
     Route: 048
     Dates: start: 20120126
  8. METHADONE HCL [Concomitant]
     Indication: PAIN
     Dosage: 10 MILLIGRAM;
     Route: 048
     Dates: start: 20120101, end: 20120201
  9. FLEXERIL [Concomitant]
     Indication: FIBROMYALGIA
     Route: 048
  10. VITAMIN B COMPLEX CAP [Concomitant]
     Indication: VITAMIN SUPPLEMENTATION
     Route: 048

REACTIONS (2)
  - DRUG INEFFECTIVE [None]
  - SOMNOLENCE [None]
